FAERS Safety Report 8772803 (Version 1)
Quarter: 2012Q4

REPORT INFORMATION
  Report Type: 
  Country: JP (occurrence: JP)
  Receive Date: 20120907
  Receipt Date: 20120907
  Transmission Date: 20130627
  Serious: Yes (Death)
  Sender: FDA-Public Use
  Company Number: PHHY2010JP094808

PATIENT

DRUGS (1)
  1. CICLOSPORIN [Suspect]
     Indication: PULMONARY FIBROSIS

REACTIONS (1)
  - Respiratory failure [Fatal]
